FAERS Safety Report 25384924 (Version 1)
Quarter: 2025Q2

REPORT INFORMATION
  Report Type: Spontaneous
  Country: US (occurrence: None)
  Receive Date: 20250530
  Receipt Date: 20250530
  Transmission Date: 20250716
  Serious: Yes (Other)
  Sender: FDA-CTU
  Company Number: None

PATIENT
  Age: 65 Year
  Sex: Female
  Weight: 56.25 kg

DRUGS (14)
  1. SEROQUEL [Suspect]
     Active Substance: QUETIAPINE FUMARATE
     Indication: Bipolar disorder
     Route: 048
     Dates: start: 20241221, end: 20241231
  2. METHYLPREDNISOLONE [Suspect]
     Active Substance: METHYLPREDNISOLONE
     Indication: Bipolar disorder
     Dates: end: 20241231
  3. Gavipanton [Concomitant]
  4. METFORMIN [Concomitant]
     Active Substance: METFORMIN HYDROCHLORIDE
  5. CRESTOR [Concomitant]
     Active Substance: ROSUVASTATIN CALCIUM
  6. BYSTOLIC [Concomitant]
     Active Substance: NEBIVOLOL HYDROCHLORIDE
  7. Meth-hyperate [Concomitant]
  8. VITAMIN D3 [Concomitant]
     Active Substance: CHOLECALCIFEROL
  9. VITAMIN C [Concomitant]
     Active Substance: ASCORBIC ACID
  10. HERBALS\TURMERIC [Concomitant]
     Active Substance: HERBALS\TURMERIC
  11. Glucosomin [Concomitant]
  12. MAGNESIUM OXIDE [Concomitant]
     Active Substance: MAGNESIUM OXIDE
  13. BIOTIN [Concomitant]
     Active Substance: BIOTIN
  14. TYLENOL [Concomitant]
     Active Substance: ACETAMINOPHEN

REACTIONS (4)
  - Dizziness [None]
  - Hallucination [None]
  - Vision blurred [None]
  - Abdominal discomfort [None]

NARRATIVE: CASE EVENT DATE: 20241219
